FAERS Safety Report 21388895 (Version 1)
Quarter: 2022Q3

REPORT INFORMATION
  Report Type: Report from Study
  Country: US (occurrence: US)
  Receive Date: 20220929
  Receipt Date: 20220929
  Transmission Date: 20221026
  Serious: No
  Sender: FDA-Public Use
  Company Number: US-ABBVIE-22K-163-4383050-00

PATIENT
  Sex: Male

DRUGS (1)
  1. IMBRUVICA [Suspect]
     Active Substance: IBRUTINIB
     Indication: B-cell prolymphocytic leukaemia
     Route: 048
     Dates: start: 20220205

REACTIONS (2)
  - Sinusitis [Unknown]
  - Sinus congestion [Unknown]

NARRATIVE: CASE EVENT DATE: 20220101
